FAERS Safety Report 8423933-8 (Version None)
Quarter: 2012Q2

REPORT INFORMATION
  Report Type: 
  Country: None (occurrence: None)
  Receive Date: 20120608
  Receipt Date: 20120420
  Transmission Date: 20120825
  Serious: No
  Sender: FDA-Public Use
  Company Number: US-ASTRAZENECA-2012SE26090

PATIENT
  Age: 50 Year
  Sex: Male
  Weight: 108 kg

DRUGS (10)
  1. LITHOBID [Concomitant]
     Indication: BIPOLAR DISORDER
  2. SEROQUEL [Suspect]
     Indication: BIPOLAR DISORDER
     Route: 048
     Dates: start: 20040101
  3. BUSPARONE [Concomitant]
     Indication: BIPOLAR DISORDER
  4. TRAZODONE HCL [Concomitant]
     Indication: BIPOLAR DISORDER
  5. ATACAND [Suspect]
     Route: 048
     Dates: start: 20120101
  6. CYMBALTA [Concomitant]
     Indication: BIPOLAR DISORDER
  7. METHOTREXATE [Concomitant]
     Indication: PSORIASIS
  8. RAMICAIDE [Concomitant]
     Indication: PSORIASIS
  9. TRICLOR [Concomitant]
     Indication: BLOOD CHOLESTEROL INCREASED
  10. PROZAC [Concomitant]
     Indication: BIPOLAR DISORDER

REACTIONS (1)
  - PSORIASIS [None]
